FAERS Safety Report 9379041 (Version 2)
Quarter: 2013Q3

REPORT INFORMATION
  Report Type: Spontaneous
  Country: US (occurrence: None)
  Receive Date: 20130626
  Receipt Date: 20130805
  Transmission Date: 20140515
  Serious: Yes (Other)
  Sender: FDA-Public Use
  Company Number: 2013STPI000231

PATIENT
  Age: 18 Year
  Sex: Male
  Weight: 113.4 kg

DRUGS (7)
  1. ONCASPAR [Suspect]
     Indication: ACUTE LYMPHOCYTIC LEUKAEMIA
     Route: 042
     Dates: start: 20130329, end: 20130329
  2. VINCRISTINE SULFATE (VINCRISTINE SULFATE) [Concomitant]
  3. ARA-C (CYTARABINE) [Concomitant]
  4. MERCAPTOPURINE (MERCAPTOPURINE) [Concomitant]
  5. EMEND (FOSAPREPITAN MEGLUMINE) [Concomitant]
  6. BENADRYL(DIPHENHYDRAMINE HYDROCHLORIDE) [Concomitant]
  7. ZOFRAN(ODANSETRON HYDROCHLORIDE) [Concomitant]

REACTIONS (5)
  - Hyperlipidaemia [None]
  - Muscle spasms [None]
  - Muscle spasms [None]
  - Hypercholesterolaemia [None]
  - Hypertriglyceridaemia [None]
